FAERS Safety Report 18214695 (Version 2)
Quarter: 2020Q4

REPORT INFORMATION
  Report Type: Spontaneous
  Country: BR (occurrence: BR)
  Receive Date: 20200831
  Receipt Date: 20201008
  Transmission Date: 20210113
  Serious: Yes (Other)
  Sender: FDA-Public Use
  Company Number: BR-GLAXOSMITHKLINE-BR2020AMR170959

PATIENT
  Sex: Female
  Weight: 50 kg

DRUGS (3)
  1. ZINNAT [Suspect]
     Active Substance: CEFUROXIME
     Indication: NECROSIS
     Dosage: 2 DF, BID
  2. AAS [Suspect]
     Active Substance: ASPIRIN
     Indication: PRODUCT USED FOR UNKNOWN INDICATION
     Dosage: UNK
  3. SIMVASTATIN. [Suspect]
     Active Substance: SIMVASTATIN
     Indication: PRODUCT USED FOR UNKNOWN INDICATION
     Dosage: UNK

REACTIONS (6)
  - Osteomyelitis [Unknown]
  - Osteonecrosis [Unknown]
  - Foreign body in gastrointestinal tract [Recovered/Resolved]
  - Gastric ulcer [Recovered/Resolved]
  - Muscle necrosis [Unknown]
  - Product use in unapproved indication [Unknown]
